FAERS Safety Report 22364799 (Version 2)
Quarter: 2023Q2

REPORT INFORMATION
  Report Type: Report from Study
  Country: CA (occurrence: CA)
  Receive Date: 20230525
  Receipt Date: 20230531
  Transmission Date: 20230721
  Serious: Yes (Hospitalization, Other)
  Sender: FDA-Public Use
  Company Number: CA-ABBVIE-4720060

PATIENT
  Sex: Male

DRUGS (3)
  1. VENCLEXTA [Suspect]
     Active Substance: VENETOCLAX
     Indication: Thymic carcinoma
     Route: 048
     Dates: start: 20230307, end: 20230314
  2. VENCLEXTA [Suspect]
     Active Substance: VENETOCLAX
     Indication: Thymic carcinoma
     Route: 048
     Dates: start: 20230323, end: 20230405
  3. VENCLEXTA [Suspect]
     Active Substance: VENETOCLAX
     Indication: Thymic carcinoma
     Route: 048
     Dates: start: 20230315, end: 20230322

REACTIONS (4)
  - Thymic carcinoma [Not Recovered/Not Resolved]
  - Brain neoplasm [Unknown]
  - Off label use [Unknown]
  - Subdural haematoma [Unknown]

NARRATIVE: CASE EVENT DATE: 20230101
